FAERS Safety Report 19435523 (Version 1)
Quarter: 2021Q2

REPORT INFORMATION
  Report Type: Spontaneous
  Country: US (occurrence: US)
  Receive Date: 20210618
  Receipt Date: 20210618
  Transmission Date: 20210717
  Serious: Yes (Other)
  Sender: FDA-Public Use
  Company Number: US-GLAXOSMITHKLINE-US2021GSK129146

PATIENT
  Sex: Female

DRUGS (15)
  1. ZANTAC [Suspect]
     Active Substance: RANITIDINE HYDROCHLORIDE
     Indication: DYSPEPSIA
     Dosage: 75 MG, I USED NAME BRAND AND OTC INTERCHANGEABLY FOR MY REFLUX, DAILY, USUALLY ONCE A DAY, BUT SOMET
     Route: 065
     Dates: start: 200801, end: 201909
  2. ZANTAC [Suspect]
     Active Substance: RANITIDINE HYDROCHLORIDE
     Indication: GASTROOESOPHAGEAL REFLUX DISEASE
     Dosage: 150 MG, I USED NAME BRAND AND OTC INTERCHANGEABLY FOR MY REFLUX, DAILY, USUALLY ONCE A DAY, BUT SOME
     Route: 065
     Dates: start: 200801, end: 201909
  3. RANITIDINE CAPSULE [Suspect]
     Active Substance: RANITIDINE
     Indication: GASTROOESOPHAGEAL REFLUX DISEASE
     Dosage: 75 MG BOTH, I USED NAME BRAND AND OTC INTERCHANGEABLY FOR MY REFLUX, DAILY, USUALLY ONCE A DAY, BUT
     Route: 065
     Dates: start: 200801, end: 201909
  4. RANITIDINE. [Suspect]
     Active Substance: RANITIDINE
     Indication: DYSPEPSIA
  5. RANITIDINE CAPSULE [Suspect]
     Active Substance: RANITIDINE
     Indication: DYSPEPSIA
     Dosage: 150 MG BOTH, I USED NAME BRAND AND OTC INTERCHANGEABLY FOR MY REFLUX, DAILY, USUALLY ONCE A DAY, BUT
     Route: 065
     Dates: start: 200801, end: 201909
  6. RANITIDINE. [Suspect]
     Active Substance: RANITIDINE
     Indication: GASTROOESOPHAGEAL REFLUX DISEASE
     Dosage: 150 MG, USED INTERCHANGEABLY WITH NAME BRAND USUALLY AT BED TIME. THE OTHER 12 HOUR DOSE WOULD BE TA
     Route: 065
     Dates: start: 200801, end: 201909
  7. RANITIDINE. [Suspect]
     Active Substance: RANITIDINE
     Indication: DYSPEPSIA
     Dosage: 75 MG, USED INTERCHANGEABLY WITH NAME BRAND USUALLY AT BED TIME. THE OTHER 12 HOUR DOSE WOULD BE TAK
     Route: 065
     Dates: start: 200801, end: 201909
  8. ZANTAC [Suspect]
     Active Substance: RANITIDINE HYDROCHLORIDE
     Indication: DYSPEPSIA
  9. RANITIDINE. [Suspect]
     Active Substance: RANITIDINE
     Indication: DYSPEPSIA
     Dosage: 75 MG, USED INTERCHANGEABLY WITH NAME BRAND USUALLY AT BED TIME. THE OTHER 12 HOUR DOSE WOULD BE TAK
     Route: 065
     Dates: start: 200801, end: 201909
  10. RANITIDINE. [Suspect]
     Active Substance: RANITIDINE
     Indication: DYSPEPSIA
  11. RANITIDINE. [Suspect]
     Active Substance: RANITIDINE
     Indication: GASTROOESOPHAGEAL REFLUX DISEASE
     Dosage: 150 MG, USED INTERCHANGEABLY WITH NAME BRAND USUALLY AT BED TIME. THE OTHER 12 HOUR DOSE WOULD BE TA
     Route: 065
     Dates: start: 200801, end: 201909
  12. RANITIDINE. [Suspect]
     Active Substance: RANITIDINE
     Indication: GASTROOESOPHAGEAL REFLUX DISEASE
     Dosage: 150 MG, USED INTERCHANGEABLY WITH NAME BRAND USUALLY AT BED TIME. THE OTHER 12 HOUR DOSE WOULD BE TA
     Route: 065
     Dates: start: 200801, end: 201909
  13. RANITIDINE. [Suspect]
     Active Substance: RANITIDINE
     Indication: DYSPEPSIA
  14. RANITIDINE. [Suspect]
     Active Substance: RANITIDINE
     Indication: DYSPEPSIA
     Dosage: 75 MG, USED INTERCHANGEABLY WITH NAME BRAND USUALLY AT BED TIME. THE OTHER 12 HOUR DOSE WOULD BE TAK
     Route: 065
     Dates: start: 200801, end: 201909
  15. RANITIDINE CAPSULE [Suspect]
     Active Substance: RANITIDINE
     Indication: DYSPEPSIA

REACTIONS (1)
  - Renal cancer [Unknown]
